FAERS Safety Report 23403570 (Version 1)
Quarter: 2024Q1

REPORT INFORMATION
  Report Type: Spontaneous
  Country: US (occurrence: US)
  Receive Date: 20240116
  Receipt Date: 20240116
  Transmission Date: 20240410
  Serious: Yes (Hospitalization, Other)
  Sender: FDA-Public Use
  Company Number: US-NOVOPROD-1160098

PATIENT

DRUGS (1)
  1. OZEMPIC [Suspect]
     Active Substance: SEMAGLUTIDE
     Indication: Type 2 diabetes mellitus
     Dosage: UNK
     Route: 058
     Dates: start: 202003

REACTIONS (5)
  - Gastrointestinal disorder [Unknown]
  - Impaired gastric emptying [Unknown]
  - Pain [Unknown]
  - Emotional distress [Unknown]
  - Injury [Unknown]
